FAERS Safety Report 20001107 (Version 1)
Quarter: 2021Q4

REPORT INFORMATION
  Report Type: Spontaneous
  Country: CZ (occurrence: CZ)
  Receive Date: 20211027
  Receipt Date: 20211027
  Transmission Date: 20220303
  Serious: Yes (Other)
  Sender: FDA-Public Use
  Company Number: CZ-NOVARTISPH-NVSC2021CZ244697

PATIENT
  Age: 53 Year
  Sex: Female

DRUGS (2)
  1. LETROZOLE [Suspect]
     Active Substance: LETROZOLE
     Indication: Hormone receptor positive HER2 negative breast cancer
     Dosage: UNK(21 CYCLES)
     Route: 065
     Dates: start: 201911, end: 202109
  2. PALBOCICLIB [Suspect]
     Active Substance: PALBOCICLIB
     Indication: Hormone receptor positive HER2 negative breast cancer
     Dosage: UNK(21 CYCLES)
     Route: 065
     Dates: start: 201911, end: 202109

REACTIONS (7)
  - Thrombocytopenia [Unknown]
  - Neutropenia [Unknown]
  - Neoplasm progression [Unknown]
  - COVID-19 [Unknown]
  - Groin pain [Unknown]
  - Anaemia [Unknown]
  - Fatigue [Unknown]

NARRATIVE: CASE EVENT DATE: 20190101
